FAERS Safety Report 22017916 (Version 14)
Quarter: 2024Q3

REPORT INFORMATION
  Report Type: Spontaneous
  Country: US (occurrence: US)
  Receive Date: 20230221
  Receipt Date: 20240820
  Transmission Date: 20241016
  Serious: Yes (Hospitalization, Other)
  Sender: BRISTOL MYERS SQUIBB
  Company Number: US-BRISTOL-MYERS SQUIBB COMPANY-2023-024782

PATIENT
  Age: 91 Year
  Sex: Female

DRUGS (9)
  1. LENALIDOMIDE [Suspect]
     Active Substance: LENALIDOMIDE
     Indication: Anaemia
     Dosage: FREQUENCY: EVERY DAY FOR 21 DAYS, THEN 7 DAYS OFF
     Route: 048
  2. LENALIDOMIDE [Suspect]
     Active Substance: LENALIDOMIDE
     Dosage: FREQUENCY: EVERY DAY FOR 21 DAYS, THEN 7 DAYS OFF, TAKE 1 CAPSULE BY MOUTH DAILY FOR 21 DAYS FOLLOWE
     Route: 048
     Dates: start: 20221228
  3. LENALIDOMIDE [Suspect]
     Active Substance: LENALIDOMIDE
     Dosage: TAKE 1 CAPSULE WHOLE BY MOUTH WITH WATER EVERY DAY FOR 21 DAYS THEN TAKE 7 DAYS OFF. DO NOT BREAK, C
     Route: 048
     Dates: start: 20230125
  4. LENALIDOMIDE [Suspect]
     Active Substance: LENALIDOMIDE
     Dosage: FREQUENCY: TAKE 1 CAPSULE BY MOUTH 3 TIMES A WEEK
     Route: 048
     Dates: start: 20230125
  5. LENALIDOMIDE [Suspect]
     Active Substance: LENALIDOMIDE
     Dosage: FREQUENCY: TAKE 1 CAPSULE BY MOUTH 3 TIMES A WEEK
     Route: 048
     Dates: start: 20230125
  6. LENALIDOMIDE [Suspect]
     Active Substance: LENALIDOMIDE
     Dosage: FREQUENCY: TAKE 1 CAPSULE BY MOUTH 3 TIMES A WEEK
     Route: 048
  7. LENALIDOMIDE [Suspect]
     Active Substance: LENALIDOMIDE
     Dosage: FREQUENCY: EVERY DAY FOR 21 DAYS, THEN 7 DAYS OFF, TAKE 1 CAPSULE BY MOUTH DAILY FOR 21 DAYS FOLLOWE
     Route: 048
     Dates: start: 20221228
  8. LENALIDOMIDE [Suspect]
     Active Substance: LENALIDOMIDE
     Dosage: FREQUENCY: EVERY DAY FOR 21 DAYS, THEN 7 DAYS OFF, TAKE 1 CAPSULE BY MOUTH DAILY FOR 21 DAYS FOLLOWE
     Route: 048
     Dates: start: 20221228
  9. LENALIDOMIDE [Suspect]
     Active Substance: LENALIDOMIDE
     Dosage: TAKE 1 WHOLE CAPSULE BY MOUTH WITH WATER DAILY FOR 21 DAYS THEN TAKE 7 DAYS OFF. DO NOT BREAK, CHEW
     Route: 048

REACTIONS (16)
  - Off label use [Unknown]
  - Fatigue [Unknown]
  - Vision blurred [Recovered/Resolved]
  - Headache [Recovered/Resolved]
  - Rash [Recovered/Resolved]
  - Arthralgia [Recovering/Resolving]
  - Product dose omission issue [Unknown]
  - Fall [Recovered/Resolved]
  - Hip fracture [Recovered/Resolved]
  - COVID-19 [Recovering/Resolving]
  - Nausea [Unknown]
  - Decreased appetite [Unknown]
  - Diarrhoea [Unknown]
  - Macular degeneration [Unknown]
  - Depression [Unknown]
  - Arthritis [Unknown]

NARRATIVE: CASE EVENT DATE: 20230906
